FAERS Safety Report 8073422-8 (Version None)
Quarter: 2011Q4

REPORT INFORMATION
  Report Type: 
  Country: None (occurrence: None)
  Receive Date: 20111221
  Receipt Date: 20110810
  Transmission Date: 20120403
  Serious: Yes (Hospitalization)
  Sender: FDA-Public Use
  Company Number: PHHY2011US26026

PATIENT
  Age: 83 Year
  Sex: Male

DRUGS (1)
  1. EXJADE [Suspect]
     Indication: MYELODYSPLASTIC SYNDROME
     Dosage: 500 MG, BID, ORAL
     Route: 048

REACTIONS (4)
  - NAUSEA [None]
  - DIARRHOEA [None]
  - CONFUSIONAL STATE [None]
  - VISUAL IMPAIRMENT [None]
